FAERS Safety Report 5752524-2 (Version None)
Quarter: 2008Q2

REPORT INFORMATION
  Report Type: 
  Country: None (occurrence: None)
  Receive Date: 20080527
  Receipt Date: 20080527
  Transmission Date: 20081010
  Serious: Yes (Other)
  Sender: FDA-Public Use
  Company Number: None

PATIENT
  Sex: Female
  Weight: 68.0396 kg

DRUGS (1)
  1. ACIPHEX [Suspect]
     Indication: GASTROOESOPHAGEAL REFLUX DISEASE
     Dosage: 20MG DAILY PO
     Route: 048
     Dates: start: 20080520, end: 20080525

REACTIONS (3)
  - DYSPEPSIA [None]
  - NO REACTION ON PREVIOUS EXPOSURE TO DRUG [None]
  - PHARMACEUTICAL PRODUCT COMPLAINT [None]
